FAERS Safety Report 9726047 (Version 2)
Quarter: 2013Q4

REPORT INFORMATION
  Report Type: Spontaneous
  Country: US (occurrence: US)
  Receive Date: 20131203
  Receipt Date: 20131203
  Transmission Date: 20140711
  Serious: Yes (Other)
  Sender: FDA-Public Use
  Company Number: US-PFIZER INC-2013336099

PATIENT
  Age: 69 Year
  Sex: Female
  Weight: 109 kg

DRUGS (4)
  1. ARTHROTEC [Suspect]
     Indication: ARTHRITIS
     Dosage: 200/75 MCG/MG, 2X/DAY
     Route: 048
     Dates: end: 201308
  2. ARTHROTEC [Suspect]
     Dosage: 200/75 MCG/MG, 2X/DAY
     Route: 048
     Dates: start: 201311
  3. LISINOPRIL [Concomitant]
     Dosage: UNK
  4. REQUIP [Concomitant]
     Indication: RESTLESS LEGS SYNDROME
     Dosage: UNK

REACTIONS (1)
  - Arthropathy [Unknown]
